FAERS Safety Report 21988138 (Version 3)
Quarter: 2023Q1

REPORT INFORMATION
  Report Type: Other
  Country: US (occurrence: None)
  Receive Date: 20230214
  Receipt Date: 20230222
  Transmission Date: 20230418
  Serious: Yes (Hospitalization, Other)
  Sender: FDA-Public Use
  Company Number: US-ROCHE-3283676

PATIENT
  Age: 55 Year
  Sex: Male

DRUGS (13)
  1. OCREVUS [Suspect]
     Active Substance: OCRELIZUMAB
     Indication: Relapsing multiple sclerosis
     Route: 065
  2. COPAXONE [Concomitant]
     Active Substance: GLATIRAMER ACETATE
  3. BACLOFEN [Concomitant]
     Active Substance: BACLOFEN
  4. TYLENOL [Concomitant]
     Active Substance: ACETAMINOPHEN
  5. BACLOFEN [Concomitant]
     Active Substance: BACLOFEN
  6. CARBATROL [Concomitant]
     Active Substance: CARBAMAZEPINE
  7. VOLTAREN [Concomitant]
     Active Substance: DICLOFENAC SODIUM
  8. CYMBALTA [Concomitant]
     Active Substance: DULOXETINE HYDROCHLORIDE
  9. CLARITIN [Concomitant]
     Active Substance: LORATADINE
  10. VIAGRA [Concomitant]
     Active Substance: SILDENAFIL CITRATE
  11. ZANAFLEX [Concomitant]
     Active Substance: TIZANIDINE HYDROCHLORIDE
  12. DEMADEX [Concomitant]
     Active Substance: TORSEMIDE
  13. GABAPENTIN [Concomitant]
     Active Substance: GABAPENTIN

REACTIONS (18)
  - Pneumonia [Unknown]
  - Limb injury [Unknown]
  - Sepsis [Unknown]
  - Hypersomnia [Unknown]
  - Muscular weakness [Unknown]
  - Urinary incontinence [Unknown]
  - Anal incontinence [Unknown]
  - Cervical spinal stenosis [Unknown]
  - Diplegia [Unknown]
  - Vocal cord paresis [Unknown]
  - Dyspnoea [Unknown]
  - Radial nerve palsy [Unknown]
  - Substance-induced psychotic disorder [Unknown]
  - Dysphagia [Unknown]
  - Oedema [Unknown]
  - Peripheral swelling [Unknown]
  - Restless legs syndrome [Unknown]
  - Drug eruption [Unknown]
